FAERS Safety Report 4972369-0 (Version None)
Quarter: 2006Q2

REPORT INFORMATION
  Report Type: 
  Country: None (occurrence: None)
  Receive Date: 20060413
  Receipt Date: 20051013
  Transmission Date: 20061013
  Serious: Yes (Hospitalization, Disabling)
  Sender: FDA-Public Use
  Company Number: PR-MERCK-0510USA07437

PATIENT
  Age: 54 Year
  Sex: Female
  Weight: 86 kg

DRUGS (3)
  1. VIOXX [Suspect]
     Indication: OSTEOARTHRITIS
     Route: 048
     Dates: start: 20020101, end: 20030101
  2. METFORMIN [Concomitant]
     Route: 065
  3. GLIPIZIDE [Concomitant]
     Route: 065

REACTIONS (20)
  - ADVERSE EVENT [None]
  - ANGINA PECTORIS [None]
  - ANXIETY [None]
  - CARDIAC FAILURE CONGESTIVE [None]
  - CEREBROVASCULAR ACCIDENT [None]
  - CHEST PAIN [None]
  - CORONARY ARTERY DISEASE [None]
  - DEPRESSION [None]
  - DIABETES MELLITUS [None]
  - DIZZINESS [None]
  - FALL [None]
  - GASTROOESOPHAGEAL REFLUX DISEASE [None]
  - HEPATIC STEATOSIS [None]
  - HEPATOMEGALY [None]
  - HYPERLIPIDAEMIA [None]
  - INSOMNIA [None]
  - PRESCRIBED OVERDOSE [None]
  - RECTOCELE [None]
  - STOMACH DISCOMFORT [None]
  - VISION BLURRED [None]
